FAERS Safety Report 9120984 (Version 1)
Quarter: 2013Q1

REPORT INFORMATION
  Report Type: Spontaneous
  Country: US (occurrence: US)
  Receive Date: 20130226
  Receipt Date: 20130226
  Transmission Date: 20140127
  Serious: Yes (Other)
  Sender: FDA-Public Use
  Company Number: US-PFIZER INC-2013069812

PATIENT
  Age: 78 Year
  Sex: Male
  Weight: 86 kg

DRUGS (7)
  1. LYRICA [Suspect]
     Indication: HYPOAESTHESIA
     Dosage: UNK, 1X/DAY
     Route: 048
     Dates: start: 201212, end: 201302
  2. HYDROCODONE [Concomitant]
     Indication: PAIN
     Dosage: UNK, AS NEEDED
  3. GABAPENTIN [Concomitant]
     Indication: PAIN
     Dosage: UNK, 1X/DAY
  4. LANSOPRAZOLE [Concomitant]
     Indication: GASTROOESOPHAGEAL REFLUX DISEASE
     Dosage: UNK, 1X/DAY
  5. LANSOPRAZOLE [Concomitant]
     Indication: DYSPEPSIA
  6. TAMSULOSIN [Concomitant]
     Indication: PROSTATIC DISORDER
     Dosage: UNK
  7. AMBIEN [Concomitant]
     Indication: SLEEP DISORDER
     Dosage: UNK, 1X/DAY

REACTIONS (1)
  - Weight increased [Not Recovered/Not Resolved]
